FAERS Safety Report 10611271 (Version 1)
Quarter: 2014Q4

REPORT INFORMATION
  Report Type: Report from Study
  Country: TR (occurrence: TR)
  Receive Date: 20141126
  Receipt Date: 20141126
  Transmission Date: 20150529
  Serious: Yes (Other)
  Sender: FDA-Public Use
  Company Number: TR-US-EMD SERONO, INC.-7337320

PATIENT
  Sex: Female

DRUGS (4)
  1. LAROXYL [Concomitant]
     Active Substance: AMITRIPTYLINE
     Indication: MUSCLE RELAXANT THERAPY
  2. PAROL [Concomitant]
     Active Substance: ACETAMINOPHEN
     Indication: PYREXIA
  3. PAROL [Concomitant]
     Active Substance: ACETAMINOPHEN
     Indication: ANALGESIC THERAPY
  4. REBIF [Suspect]
     Active Substance: INTERFERON BETA-1A
     Indication: MULTIPLE SCLEROSIS

REACTIONS (5)
  - Haemoglobin decreased [Unknown]
  - Haematocrit decreased [Unknown]
  - Autoimmune thyroiditis [Unknown]
  - Injection site mass [Recovering/Resolving]
  - Injection site pain [Recovering/Resolving]

NARRATIVE: CASE EVENT DATE: 20140806
